FAERS Safety Report 21330573 (Version 1)
Quarter: 2022Q3

REPORT INFORMATION
  Report Type: Other
  Country: US (occurrence: US)
  Receive Date: 20220913
  Receipt Date: 20220913
  Transmission Date: 20221027
  Serious: Yes (Other)
  Sender: FDA-Public Use
  Company Number: US-GBT-016150

PATIENT
  Sex: Female

DRUGS (2)
  1. OXBRYTA [Suspect]
     Active Substance: VOXELOTOR
     Indication: Sickle cell disease
  2. ADAKVEO [Concomitant]
     Active Substance: CRIZANLIZUMAB-TMCA

REACTIONS (4)
  - Pneumonia [Unknown]
  - Sickle cell anaemia with crisis [Unknown]
  - COVID-19 [Unknown]
  - Therapeutic product effect decreased [Unknown]
